FAERS Safety Report 7151379-1 (Version None)
Quarter: 2010Q4

REPORT INFORMATION
  Report Type: 
  Country: None (occurrence: None)
  Receive Date: 20101126
  Receipt Date: 20101110
  Transmission Date: 20110411
  Serious: Yes (Other)
  Sender: FDA-Public Use
  Company Number: 21-703-2010-00004

PATIENT
  Age: 6 Week
  Sex: Female
  Weight: 3.9 kg

DRUGS (1)
  1. PRISMASOL B22GK 2/0 [Suspect]
     Dosage: HEMODIALYSIS, INTRAVENOUS
     Route: 042
     Dates: start: 20101108

REACTIONS (1)
  - HYPONATRAEMIA [None]
